FAERS Safety Report 18156618 (Version 1)
Quarter: 2020Q3

REPORT INFORMATION
  Report Type: Spontaneous
  Country: US (occurrence: US)
  Receive Date: 20200816
  Receipt Date: 20200816
  Transmission Date: 20201103
  Serious: Yes (Other)
  Sender: FDA-Public Use
  Company Number: None

PATIENT
  Age: 25 Year
  Sex: Male

DRUGS (3)
  1. VITAMIN D3 [Concomitant]
     Active Substance: CHOLECALCIFEROL
  2. METOCLOPRAMIDE 10MG [Suspect]
     Active Substance: METOCLOPRAMIDE
     Indication: GASTROOESOPHAGEAL REFLUX DISEASE
     Dosage: ?          QUANTITY:60 TABLET(S);?
     Route: 048
     Dates: start: 20200813, end: 20200814
  3. METOCLOPRAMIDE 10MG [Suspect]
     Active Substance: METOCLOPRAMIDE
     Indication: GASTRITIS
     Dosage: ?          QUANTITY:60 TABLET(S);?
     Route: 048
     Dates: start: 20200813, end: 20200814

REACTIONS (10)
  - Paraesthesia [None]
  - Confusional state [None]
  - Impaired driving ability [None]
  - Malaise [None]
  - Hyperventilation [None]
  - Asthenia [None]
  - Hyperhidrosis [None]
  - Anxiety [None]
  - Dizziness [None]
  - Dyspnoea [None]

NARRATIVE: CASE EVENT DATE: 20200813
